FAERS Safety Report 6328202-8 (Version None)
Quarter: 2009Q3

REPORT INFORMATION
  Report Type: 
  Country: None (occurrence: None)
  Receive Date: 20090825
  Receipt Date: 20081125
  Transmission Date: 20100115
  Serious: No
  Sender: FDA-Public Use
  Company Number: US-ABBOTT-08P-163-0489790-00

PATIENT
  Sex: Male
  Weight: 95.34 kg

DRUGS (10)
  1. SYNTHROID [Suspect]
     Indication: BLOOD THYROID STIMULATING HORMONE INCREASED
     Dates: start: 20080501
  2. METFORMIN HYDROCHLORIDE [Concomitant]
     Indication: DIABETES MELLITUS
  3. GLUCATROL [Concomitant]
     Indication: DIABETES MELLITUS
  4. ATENOLOL [Concomitant]
     Indication: HYPERTENSION
  5. CADUET [Concomitant]
     Indication: BLOOD CHOLESTEROL INCREASED
  6. PREGABALIN [Concomitant]
     Indication: NEUROPATHY PERIPHERAL
  7. PLAVIX [Concomitant]
     Indication: ANTICOAGULANT THERAPY
  8. ASPIRIN [Concomitant]
     Indication: PROPHYLAXIS
  9. FENOFIBRATE [Concomitant]
     Indication: BLOOD CHOLESTEROL INCREASED
  10. FISH OIL [Concomitant]
     Indication: BLOOD CHOLESTEROL INCREASED

REACTIONS (1)
  - BLOOD GLUCOSE INCREASED [None]
